FAERS Safety Report 21373433 (Version 1)
Quarter: 2022Q3

REPORT INFORMATION
  Report Type: Report from Study
  Country: US (occurrence: US)
  Receive Date: 20220925
  Receipt Date: 20220925
  Transmission Date: 20221027
  Serious: Yes (Other)
  Sender: FDA-Public Use
  Company Number: US-009507513-2206USA002125

PATIENT
  Age: 58 Year
  Sex: Male

DRUGS (3)
  1. ZINPLAVA [Suspect]
     Active Substance: BEZLOTOXUMAB
     Indication: Clostridium difficile infection
     Dosage: 1000MG ONCE
     Dates: start: 20220517
  2. ZINPLAVA [Suspect]
     Active Substance: BEZLOTOXUMAB
     Dosage: SEE EVENT DESCRIPTION
  3. DIFICID [Suspect]
     Active Substance: FIDAXOMICIN
     Dosage: SEE EVENT DESCRIPTION

REACTIONS (4)
  - Drug ineffective [Unknown]
  - Drug ineffective [Unknown]
  - Clostridium difficile infection [Unknown]
  - Impaired work ability [Unknown]

NARRATIVE: CASE EVENT DATE: 20220501
